FAERS Safety Report 8921072 (Version 2)
Quarter: 2013Q1

REPORT INFORMATION
  Report Type: Spontaneous
  Country: FR (occurrence: FR)
  Receive Date: 20121121
  Receipt Date: 20130111
  Transmission Date: 20140127
  Serious: Yes (Other)
  Sender: FDA-Public Use
  Company Number: FR-ASTRAZENECA-2012SE87656

PATIENT
  Age: 21341 Day
  Sex: Male

DRUGS (10)
  1. CAPRELSA [Suspect]
     Indication: THYROID CANCER
     Route: 048
     Dates: start: 20120928
  2. THERALENE [Suspect]
     Indication: SLEEP DISORDER
     Route: 048
     Dates: start: 20121106, end: 20121106
  3. PARIET [Concomitant]
  4. LOVENOX [Concomitant]
  5. DIFFU-K [Concomitant]
  6. MAGNE B6 [Concomitant]
  7. AERIUS [Concomitant]
  8. RISPERDAL [Concomitant]
  9. DEPAKOTE [Concomitant]
  10. IMOVANE [Concomitant]

REACTIONS (7)
  - Bundle branch block right [Not Recovered/Not Resolved]
  - Electrocardiogram ST-T segment elevation [Not Recovered/Not Resolved]
  - Electrocardiogram ST-T segment depression [Not Recovered/Not Resolved]
  - Troponin increased [Not Recovered/Not Resolved]
  - Electrocardiogram QT prolonged [Not Recovered/Not Resolved]
  - Sleep disorder [Unknown]
  - Bundle branch block [Unknown]
